FAERS Safety Report 8615180-1 (Version None)
Quarter: 2012Q3

REPORT INFORMATION
  Report Type: 
  Country: None (occurrence: None)
  Receive Date: 20120823
  Receipt Date: 20120817
  Transmission Date: 20120928
  Serious: Yes (Other)
  Sender: FDA-Public Use
  Company Number: JP-CELGENEUS-087-21880-11043488

PATIENT
  Sex: Female

DRUGS (37)
  1. REVLIMID [Suspect]
     Dosage: 10 MILLIGRAM
     Route: 048
     Dates: start: 20110420, end: 20110510
  2. LENDORMIN D [Concomitant]
     Dosage: .25 MILLIGRAM
     Route: 048
     Dates: start: 20030117
  3. SULFAMETHOXAZOLE AND TRIMETHOPRIM [Concomitant]
     Dosage: .5 TABLET
     Route: 048
     Dates: start: 20110818
  4. LOXONIN [Concomitant]
     Indication: MULTIPLE MYELOMA
     Route: 062
     Dates: start: 20110112
  5. ZOMETA [Concomitant]
     Indication: MULTIPLE MYELOMA
     Dosage: 4 MILLIGRAM
     Route: 041
     Dates: start: 20101215, end: 20101215
  6. REVLIMID [Suspect]
     Indication: MULTIPLE MYELOMA
     Dosage: 25 MILLIGRAM
     Route: 048
     Dates: start: 20101115, end: 20101123
  7. DEXAMETHASONE ACETATE [Suspect]
     Dosage: 40 MILLIGRAM
     Route: 048
     Dates: start: 20110112, end: 20110114
  8. FAMOTIDINE [Concomitant]
     Indication: PROPHYLAXIS
     Dosage: 20 MILLIGRAM
     Route: 048
     Dates: start: 20070618
  9. RISEDRONATE SODIUM [Concomitant]
     Dosage: 17.5 MILLIGRAM
     Route: 048
     Dates: start: 20110420
  10. REVLIMID [Suspect]
     Dosage: 10 MILLIGRAM
     Route: 048
     Dates: start: 20110223, end: 20110315
  11. REVLIMID [Suspect]
     Dosage: 10 MILLIGRAM
     Route: 048
     Dates: start: 20110608, end: 20110621
  12. DEXAMETHASONE ACETATE [Suspect]
     Dosage: 40 MILLIGRAM
     Route: 048
     Dates: start: 20110223, end: 20110224
  13. ASPIRIN [Suspect]
     Indication: PROPHYLAXIS
     Dosage: 100 MILLIGRAM
     Route: 048
     Dates: start: 20101115
  14. REVLIMID [Suspect]
     Dosage: 10 MILLIGRAM
     Route: 048
     Dates: start: 20110324, end: 20110413
  15. RISEDRONATE SODIUM [Concomitant]
     Indication: MULTIPLE MYELOMA
     Dosage: 17.5 MILLIGRAM
     Route: 048
     Dates: start: 20101215
  16. LOXONIN [Concomitant]
     Dosage: 180 MILLIGRAM
     Route: 062
     Dates: start: 20110814, end: 20110817
  17. DEXAMETHASONE ACETATE [Suspect]
     Indication: MULTIPLE MYELOMA
     Dosage: 40 MILLIGRAM
     Route: 048
     Dates: start: 20101115, end: 20101115
  18. DEXAMETHASONE ACETATE [Suspect]
     Dosage: 40 MILLIGRAM
     Route: 048
     Dates: start: 20110202, end: 20110204
  19. MS REISHIPPU [Concomitant]
     Indication: MULTIPLE MYELOMA
     Route: 062
     Dates: start: 20101113, end: 20101206
  20. MAGLAX [Concomitant]
     Dosage: 990 MILLIGRAM
     Route: 048
     Dates: start: 20021215
  21. REVLIMID [Suspect]
     Dosage: 10 MILLIGRAM
     Route: 048
     Dates: start: 20110126, end: 20110216
  22. REVLIMID [Suspect]
     Dosage: 10 MILLIGRAM
     Route: 048
     Dates: start: 20110518, end: 20110531
  23. REVLIMID [Suspect]
     Dosage: 5 MILLIGRAM
     Route: 048
     Dates: start: 20110713, end: 20110822
  24. DEXAMETHASONE ACETATE [Suspect]
     Dosage: 40 MILLIGRAM
     Route: 048
     Dates: start: 20110330, end: 20110401
  25. DEXAMETHASONE ACETATE [Suspect]
     Dosage: 40 MILLIGRAM
     Route: 048
     Dates: start: 20110420, end: 20110615
  26. REVLIMID [Suspect]
     Dosage: 10 MILLIGRAM
     Route: 048
     Dates: start: 20101229, end: 20110125
  27. DEXAMETHASONE ACETATE [Suspect]
     Dosage: 40 MILLIGRAM
     Route: 048
     Dates: start: 20110307, end: 20110309
  28. KETOPROFEN [Concomitant]
     Indication: MULTIPLE MYELOMA
     Route: 062
     Dates: start: 20101115
  29. KETOPROFEN [Concomitant]
     Indication: MULTIPLE MYELOMA
     Route: 062
     Dates: start: 20101116, end: 20110111
  30. REVLIMID [Suspect]
     Dosage: 10 MILLIGRAM
     Route: 048
     Dates: start: 20101130, end: 20101220
  31. REVLIMID [Suspect]
     Dosage: 10 MILLIGRAM
     Route: 048
     Dates: start: 20110622, end: 20110705
  32. DEXAMETHASONE ACETATE [Suspect]
     Dosage: 40 MILLIGRAM
     Route: 048
     Dates: start: 20101130, end: 20101207
  33. DEXAMETHASONE ACETATE [Suspect]
     Dosage: 40 MILLIGRAM
     Route: 048
     Dates: start: 20101222, end: 20101225
  34. ACETAMINOPHEN [Concomitant]
     Indication: MULTIPLE MYELOMA
     Dosage: 50 MILLIGRAM
     Route: 048
     Dates: start: 20110818
  35. PURSENNID [Concomitant]
     Dosage: 12 MILLIGRAM
     Route: 048
     Dates: start: 20030328, end: 20101216
  36. SULFAMETHOXAZOLE AND TRIMETHOPRIM [Concomitant]
     Indication: MULTIPLE MYELOMA
     Dosage: 1 TABLET
     Route: 048
     Dates: start: 20101215
  37. SULFAMETHOXAZOLE AND TRIMETHOPRIM [Concomitant]
     Dosage: 1 TABLET
     Route: 048
     Dates: start: 20110420, end: 20110817

REACTIONS (12)
  - DIPLOPIA [None]
  - BONE PAIN [None]
  - GASTROINTESTINAL CANDIDIASIS [None]
  - FACE OEDEMA [None]
  - URINARY TRACT INFECTION [None]
  - LYMPHOCYTE COUNT DECREASED [None]
  - PLATELET COUNT DECREASED [None]
  - ANAEMIA [None]
  - BACK PAIN [None]
  - LIVER DISORDER [None]
  - PYREXIA [None]
  - PAIN IN EXTREMITY [None]
